FAERS Safety Report 8525226 (Version 6)
Quarter: 2014Q2

REPORT INFORMATION
  Report Type: Report from Study
  Country: GB (occurrence: GB)
  Receive Date: 20120423
  Receipt Date: 20140507
  Transmission Date: 20141212
  Serious: Yes (Hospitalization)
  Sender: FDA-Public Use
  Company Number: GB-NOVOPROD-347945

PATIENT
  Age: 65 Year
  Sex: Male
  Weight: 65.9 kg

DRUGS (2)
  1. PLACEBO RUN IN [Suspect]
     Indication: TYPE 2 DIABETES MELLITUS
     Dosage: 0.6 MG, QD
     Route: 058
     Dates: start: 20120224, end: 20120307
  2. LIRAGLUTIDE FLEXPEN [Suspect]
     Dosage: NOT SUSPECT, PLACEBO CASE

REACTIONS (1)
  - Lower respiratory tract infection [Recovered/Resolved]
